FAERS Safety Report 11573200 (Version 3)
Quarter: 2015Q4

REPORT INFORMATION
  Report Type: Report from Study
  Country: JP (occurrence: JP)
  Receive Date: 20150929
  Receipt Date: 20151027
  Transmission Date: 20160304
  Serious: Yes (Hospitalization)
  Sender: FDA-Public Use
  Company Number: JP-TEVA-590808USA

PATIENT
  Age: 53 Year
  Sex: Female
  Weight: 49 kg

DRUGS (23)
  1. METOCLOPRAMIDE. [Suspect]
     Active Substance: METOCLOPRAMIDE
     Route: 048
     Dates: start: 20150815
  2. METOCLOPRAMIDE. [Suspect]
     Active Substance: METOCLOPRAMIDE
     Route: 048
     Dates: start: 20150818
  3. HYDROCORTISONE SODIUM SUCCINATE [Concomitant]
     Active Substance: HYDROCORTISONE SODIUM SUCCINATE
     Indication: INFUSION RELATED REACTION
     Dosage: 100 MG, ONCE IN
     Route: 042
     Dates: start: 20150813
  4. METOCLOPRAMIDE. [Suspect]
     Active Substance: METOCLOPRAMIDE
     Indication: PROPHYLAXIS OF NAUSEA AND VOMITING
     Route: 048
     Dates: start: 20150816
  5. LEVOFLOXACIN. [Suspect]
     Active Substance: LEVOFLOXACIN
     Indication: MYCOBACTERIAL INFECTION
     Route: 048
     Dates: start: 20150728
  6. RITUXIMAB [Suspect]
     Active Substance: RITUXIMAB
     Dosage: 100 ML, IN 1 HOUR
     Route: 042
     Dates: start: 20150909
  7. RITUXIMAB [Suspect]
     Active Substance: RITUXIMAB
     Dosage: 200 ML, IN 1 HOUR
     Route: 042
     Dates: start: 20150909
  8. BACTRIM [Suspect]
     Active Substance: SULFAMETHOXAZOLE\TRIMETHOPRIM
     Indication: ANTIFUNGAL PROPHYLAXIS
     Route: 048
     Dates: start: 20150819, end: 20150825
  9. PALONOSETRON HYDROCHLORIDE. [Suspect]
     Active Substance: PALONOSETRON HYDROCHLORIDE
     Indication: PROPHYLAXIS OF NAUSEA AND VOMITING
     Dosage: 0.75 MG, UNKNOWN FREQ.
     Route: 042
     Dates: start: 20150813
  10. ACETAMINOPHEN. [Concomitant]
     Active Substance: ACETAMINOPHEN
     Indication: PROPHYLAXIS
     Route: 048
     Dates: start: 20150813
  11. CHLORPHENIRAMINE MALEATE. [Concomitant]
     Active Substance: CHLORPHENIRAMINE MALEATE
     Indication: PROPHYLAXIS
     Route: 048
     Dates: start: 20150813
  12. RITUXIMAB [Suspect]
     Active Substance: RITUXIMAB
     Dosage: 400 ML, IN 1 HOUR
     Route: 042
     Dates: start: 20150909
  13. ETHAMBUTOL HYDROCHLORIDE. [Suspect]
     Active Substance: ETHAMBUTOL HYDROCHLORIDE
     Dosage: 500 MG, 1 IN 1 DAY
     Route: 048
  14. RIFAMPICIN [Concomitant]
     Active Substance: RIFAMPIN
     Indication: MYCOBACTERIAL INFECTION
     Route: 048
  15. BFLUID [Concomitant]
     Active Substance: AMINO ACIDS\DEXTROSE\ELECTROLYTES NOS\VITAMINS
     Indication: DECREASED APPETITE
     Route: 042
     Dates: start: 20150816
  16. SENNOSIDE A+B CALCIUM [Concomitant]
     Active Substance: SENNOSIDES A AND B
     Indication: CONSTIPATION
     Route: 048
     Dates: start: 20150816
  17. APREPITANT. [Concomitant]
     Active Substance: APREPITANT
     Indication: PROPHYLAXIS OF NAUSEA AND VOMITING
     Route: 048
     Dates: start: 20150909
  18. ETHAMBUTOL HYDROCHLORIDE. [Suspect]
     Active Substance: ETHAMBUTOL HYDROCHLORIDE
     Indication: MYCOBACTERIAL INFECTION
     Route: 048
     Dates: start: 20120912
  19. METOCLOPRAMIDE. [Suspect]
     Active Substance: METOCLOPRAMIDE
     Route: 048
     Dates: start: 20150816
  20. RITUXIMAB [Suspect]
     Active Substance: RITUXIMAB
     Dosage: 300 ML, IN 1 HOUR
     Route: 042
     Dates: start: 20150909
  21. BENDAMUSTINE HYDROCHLORIDE [Suspect]
     Active Substance: BENDAMUSTINE HYDROCHLORIDE
     Indication: NON-HODGKIN^S LYMPHOMA
     Dosage: 905 MG/M2, CYCLIC (CYCLE 1)
     Route: 042
     Dates: start: 20150813, end: 20150909
  22. RITUXIMAB [Suspect]
     Active Substance: RITUXIMAB
     Indication: NON-HODGKIN^S LYMPHOMA
     Dosage: 375 MG/M2, CYCLIC (CYCLE 1)
     Route: 042
     Dates: start: 20150813
  23. POTASSIUM CHLORIDE. [Concomitant]
     Active Substance: POTASSIUM CHLORIDE
     Indication: HYPOKALAEMIA
     Route: 042
     Dates: start: 20150817

REACTIONS (4)
  - Urticaria [Recovered/Resolved]
  - Hypoxia [Recovered/Resolved]
  - Infusion related reaction [Recovered/Resolved]
  - Pyrexia [Recovered/Resolved]

NARRATIVE: CASE EVENT DATE: 20150823
